FAERS Safety Report 15283050 (Version 2)
Quarter: 2025Q2

REPORT INFORMATION
  Report Type: Report from Study
  Country: DE (occurrence: DE)
  Receive Date: 20180816
  Receipt Date: 20250604
  Transmission Date: 20250717
  Serious: Yes (Hospitalization, Other)
  Sender: AUROBINDO
  Company Number: DE-AUROBINDO-AUR-APL-2018-041697

PATIENT
  Sex: Female

DRUGS (6)
  1. RAMIPRIL [Suspect]
     Active Substance: RAMIPRIL
     Indication: Product used for unknown indication
     Route: 064
  2. CLOPIDOGREL [Suspect]
     Active Substance: CLOPIDOGREL BISULFATE
     Indication: Product used for unknown indication
     Route: 064
  3. ASPIRIN [Suspect]
     Active Substance: ASPIRIN
     Indication: Product used for unknown indication
     Route: 064
  4. DIHYDRALAZINE [Suspect]
     Active Substance: DIHYDRALAZINE
     Indication: Product used for unknown indication
     Route: 064
  5. METOPROLOL [Suspect]
     Active Substance: METOPROLOL
     Indication: Product used for unknown indication
     Route: 064
  6. PRAVASTATIN [Suspect]
     Active Substance: PRAVASTATIN
     Indication: Product used for unknown indication
     Route: 064

REACTIONS (11)
  - Patent ductus arteriosus [Unknown]
  - Supravalvular aortic stenosis [Unknown]
  - Congenital aortic anomaly [Unknown]
  - Mitral valve disease [Unknown]
  - Aorta hypoplasia [Unknown]
  - Ventricular septal defect [Unknown]
  - Seizure [Unknown]
  - Aortic valve stenosis [Unknown]
  - Aortic occlusion [Unknown]
  - Atrial septal defect [Unknown]
  - Foetal exposure timing unspecified [Unknown]
